FAERS Safety Report 7644009-3 (Version None)
Quarter: 2011Q3

REPORT INFORMATION
  Report Type: 
  Country: None (occurrence: None)
  Receive Date: 20110729
  Receipt Date: 20110726
  Transmission Date: 20111222
  Serious: Yes (Life-Threatening)
  Sender: FDA-Public Use
  Company Number: FR-PFIZER INC-2011169715

PATIENT
  Age: 64 Year
  Sex: Male

DRUGS (4)
  1. CIPROFLAXACIN [Suspect]
     Indication: PYREXIA
     Dosage: UNK
     Route: 042
     Dates: start: 20080419, end: 20080428
  2. TEICOPLANIN [Suspect]
     Indication: PYREXIA
     Dosage: UNK
     Route: 042
     Dates: start: 20080423, end: 20080428
  3. PIPERACILLIN AND TAZOBACTAM [Suspect]
     Indication: PYREXIA
     Dosage: UNK
     Route: 042
     Dates: start: 20080419, end: 20080428
  4. ALIMTA [Suspect]
     Dosage: 1.3 G, SINGLE
     Route: 042
     Dates: start: 20080411

REACTIONS (5)
  - THROMBOCYTOPENIA [None]
  - NEUTROPENIA [None]
  - BLOOD CREATININE INCREASED [None]
  - TRANSAMINASES INCREASED [None]
  - DERMATITIS EXFOLIATIVE [None]
